FAERS Safety Report 12887491 (Version 1)
Quarter: 2016Q4

REPORT INFORMATION
  Report Type: Other
  Country: CZ (occurrence: CZ)
  Receive Date: 20161026
  Receipt Date: 20161026
  Transmission Date: 20170207
  Serious: Yes (Death, Hospitalization, Other)
  Sender: FDA-Public Use
  Company Number: CZ-TAKEDA-2016MPI009213

PATIENT
  Age: 70 Year
  Sex: Male
  Weight: 90 kg

DRUGS (7)
  1. IXAZOMIB [Suspect]
     Active Substance: IXAZOMIB
     Indication: PLASMA CELL MYELOMA
     Route: 065
     Dates: start: 20160916, end: 20161004
  2. REVLIMID [Concomitant]
     Active Substance: LENALIDOMIDE
     Indication: PLASMA CELL MYELOMA
     Dates: start: 20160601, end: 20161004
  3. FRAXIPARINE [Concomitant]
     Active Substance: NADROPARIN CALCIUM
     Indication: PROPHYLAXIS
     Route: 065
     Dates: start: 20160601
  4. FURORESE                           /00032601/ [Concomitant]
     Indication: HYPERTENSION
     Route: 048
  5. KALNORMIN [Concomitant]
     Active Substance: POTASSIUM CHLORIDE
     Indication: PROPHYLAXIS
     Dosage: 1 G, 1/WEEK
     Route: 048
     Dates: start: 20160601, end: 20161004
  6. DEXAMETASON                        /00016001/ [Concomitant]
     Indication: PLASMA CELL MYELOMA
     Route: 065
     Dates: start: 20160601, end: 20161004
  7. ZOVIRAX [Concomitant]
     Active Substance: ACYCLOVIR
     Indication: PROPHYLAXIS
     Dosage: 200 MG, QD
     Route: 048
     Dates: start: 20160916

REACTIONS (3)
  - Atrial fibrillation [Fatal]
  - Cardiac failure [Fatal]
  - Pneumonia [Fatal]

NARRATIVE: CASE EVENT DATE: 20161004
